FAERS Safety Report 5456315-1 (Version None)
Quarter: 2007Q3

REPORT INFORMATION
  Report Type: 
  Country: None (occurrence: None)
  Receive Date: 20070918
  Receipt Date: 20070904
  Transmission Date: 20080115
  Serious: Yes (Hospitalization)
  Sender: FDA-Public Use
  Company Number: US-MERCK-0709USA02136

PATIENT
  Age: 74 Year
  Sex: Male

DRUGS (15)
  1. ZOCOR [Suspect]
     Route: 048
  2. LASIX [Concomitant]
     Route: 065
  3. FLOMAX [Concomitant]
     Route: 065
  4. METOPROLOL [Concomitant]
     Route: 065
  5. COUMADIN [Concomitant]
     Route: 065
  6. K-DUR 10 [Concomitant]
     Route: 065
  7. ASPIRIN [Concomitant]
     Route: 065
  8. FINASTERIDE [Suspect]
     Route: 065
  9. SENNOSIDES [Concomitant]
     Route: 065
  10. COMBIVENT [Concomitant]
  11. DOCUSATE CALCIUM [Concomitant]
     Route: 065
  12. FORADIL [Concomitant]
  13. FLUNISOLIDE [Concomitant]
  14. GUAIFENESIN [Concomitant]
     Route: 065
  15. MOXIFLOXACIN HYDROCHLORIDE [Concomitant]
     Route: 065

REACTIONS (6)
  - ANAEMIA [None]
  - COAGULATION TIME PROLONGED [None]
  - HAEMOPTYSIS [None]
  - PLEURAL EFFUSION [None]
  - PNEUMOTHORAX [None]
  - TRACHEOBRONCHITIS [None]
